FAERS Safety Report 14855409 (Version 1)
Quarter: 2018Q2

REPORT INFORMATION
  Report Type: Spontaneous
  Country: US (occurrence: US)
  Receive Date: 20180507
  Receipt Date: 20180507
  Transmission Date: 20180711
  Serious: No
  Sender: FDA-Public Use
  Company Number: US-PFIZER INC-2018184069

PATIENT
  Sex: Male

DRUGS (2)
  1. TYLENOL [Concomitant]
     Active Substance: ACETAMINOPHEN
     Dosage: UNK
  2. CHILDRENS ADVIL [Suspect]
     Active Substance: IBUPROFEN
     Indication: GASTRIC DISORDER
     Dosage: UNK

REACTIONS (3)
  - Pyrexia [Unknown]
  - Product use in unapproved indication [Unknown]
  - Vomiting [Unknown]
